FAERS Safety Report 5413141-7 (Version None)
Quarter: 2007Q3

REPORT INFORMATION
  Report Type: 
  Country: None (occurrence: None)
  Receive Date: 20070810
  Receipt Date: 20070806
  Transmission Date: 20080115
  Serious: Yes (Hospitalization, Other)
  Sender: FDA-Public Use
  Company Number: 2007SP013848

PATIENT
  Age: 45 Year
  Sex: Female
  Weight: 108.8633 kg

DRUGS (4)
  1. PEG-INTRON [Suspect]
     Indication: HEPATITIS C
     Dosage: SC, SC
     Route: 058
     Dates: start: 20070529, end: 20070619
  2. PEG-INTRON [Suspect]
     Indication: HEPATITIS C
     Dosage: SC, SC
     Route: 058
     Dates: start: 20070730
  3. RIBAVIRIN [Suspect]
     Indication: HEPATITIS C
     Dosage: PO, BID; PO
     Route: 048
     Dates: start: 20070529, end: 20070619
  4. RIBAVIRIN [Suspect]
     Indication: HEPATITIS C
     Dosage: PO, BID; PO
     Route: 048
     Dates: start: 20070709

REACTIONS (9)
  - ASTHENIA [None]
  - DEHYDRATION [None]
  - FATIGUE [None]
  - INCISIONAL HERNIA GANGRENOUS [None]
  - INFLUENZA LIKE ILLNESS [None]
  - MOVEMENT DISORDER [None]
  - NAUSEA [None]
  - VOMITING [None]
  - WEIGHT DECREASED [None]
